FAERS Safety Report 22110958 (Version 1)
Quarter: 2023Q1

REPORT INFORMATION
  Report Type: Spontaneous
  Country: SK (occurrence: SK)
  Receive Date: 20230317
  Receipt Date: 20230317
  Transmission Date: 20230418
  Serious: Yes (Other)
  Sender: FDA-Public Use
  Company Number: SK-BAYER-2023A035731

PATIENT
  Age: 38 Year
  Sex: Male

DRUGS (4)
  1. KOGENATE [Suspect]
     Active Substance: ANTIHEMOPHILIC FACTOR, HUMAN RECOMBINANT
     Indication: Prophylaxis
     Dosage: 25 IU/KG, BIW
     Dates: start: 2010
  2. KOVALTRY [Suspect]
     Active Substance: ANTIHEMOPHILIC FACTOR, HUMAN RECOMBINANT
     Indication: Prophylaxis
     Dosage: 25 IU/KG, BIW
     Dates: start: 201903
  3. KOVALTRY [Suspect]
     Active Substance: ANTIHEMOPHILIC FACTOR, HUMAN RECOMBINANT
     Indication: Prophylaxis
     Dosage: 20 IU/KG
  4. KOVALTRY [Suspect]
     Active Substance: ANTIHEMOPHILIC FACTOR, HUMAN RECOMBINANT
     Indication: Prophylaxis
     Dosage: 25 IU/KG, BIW

REACTIONS (5)
  - Haemorrhage [Recovered/Resolved]
  - Haemarthrosis [None]
  - Haemarthrosis [None]
  - Tooth extraction [Recovered/Resolved]
  - Weight increased [None]

NARRATIVE: CASE EVENT DATE: 20210101
